FAERS Safety Report 6478793-1 (Version None)
Quarter: 2009Q4

REPORT INFORMATION
  Report Type: 
  Country: None (occurrence: None)
  Receive Date: 20091123
  Receipt Date: 20090806
  Transmission Date: 20100525
  Serious: No
  Sender: FDA-Public Use
  Company Number: 8050116

PATIENT
  Age: 39 Year
  Sex: Female

DRUGS (5)
  1. CIMZIA [Suspect]
     Indication: COLITIS ULCERATIVE
     Dosage: 400 MG SC
     Route: 058
     Dates: start: 20090805
  2. ZOCOR [Concomitant]
  3. VITAMIN E [Concomitant]
  4. COQ10 [Concomitant]
  5. ACIDOPHILUS [Concomitant]

REACTIONS (3)
  - INJECTION SITE RASH [None]
  - INJECTION SITE SWELLING [None]
  - OFF LABEL USE [None]
